FAERS Safety Report 8240278-X (Version None)
Quarter: 2012Q1

REPORT INFORMATION
  Report Type: 
  Country: None (occurrence: None)
  Receive Date: 20120328
  Receipt Date: 20120328
  Transmission Date: 20120608
  Serious: Yes (Other)
  Sender: FDA-Public Use
  Company Number: None

PATIENT
  Age: 26 Year
  Sex: Female
  Weight: 68.038 kg

DRUGS (7)
  1. PREGABALIN [Concomitant]
     Route: 048
  2. VIIBRYD [Suspect]
     Indication: DEPRESSION
     Dosage: 10 MG/20 MG
     Route: 048
  3. BUPROPION HYDROCHLORIDE [Concomitant]
     Route: 048
  4. BUPROPION HCL [Concomitant]
     Indication: ANXIETY
     Route: 048
  5. FAMOTIDINE [Concomitant]
     Route: 048
  6. INDOMETHACIN [Concomitant]
     Route: 048
  7. INDOMETHACIN [Concomitant]
     Route: 048

REACTIONS (8)
  - EYE PAIN [None]
  - PSORIASIS [None]
  - HEADACHE [None]
  - CONDITION AGGRAVATED [None]
  - MIGRAINE [None]
  - VISUAL IMPAIRMENT [None]
  - AURA [None]
  - INSOMNIA [None]
